FAERS Safety Report 8252923-3 (Version None)
Quarter: 2012Q2

REPORT INFORMATION
  Report Type: 
  Country: None (occurrence: None)
  Receive Date: 20120402
  Receipt Date: 20120208
  Transmission Date: 20120825
  Serious: No
  Sender: FDA-Public Use
  Company Number: US-ABBOTT-12P-163-0904614-00

PATIENT
  Age: 62 Year
  Sex: Male
  Weight: 68.1 kg

DRUGS (4)
  1. ANDROGEL [Suspect]
     Indication: BLOOD TESTOSTERONE DECREASED
     Dosage: 3 PUMPS PER DAY
     Dates: start: 20110101, end: 20120209
  2. UNKNOWN MEDICATION [Concomitant]
     Indication: OSTEOPOROSIS
  3. ANDROGEL [Suspect]
     Dosage: 4 PUMPS PER DAY
     Dates: start: 20120209
  4. ANDROGEL [Suspect]
     Indication: BLOOD TESTOSTERONE DECREASED

REACTIONS (2)
  - LIBIDO DISORDER [None]
  - BLOOD TESTOSTERONE DECREASED [None]
